FAERS Safety Report 6492250-8 (Version None)
Quarter: 2009Q4

REPORT INFORMATION
  Report Type: 
  Country: None (occurrence: None)
  Receive Date: 20091214
  Receipt Date: 20091202
  Transmission Date: 20100525
  Serious: Yes (Other)
  Sender: FDA-Public Use
  Company Number: US-BAYER-200923052NA

PATIENT
  Age: 55 Year
  Sex: Female

DRUGS (5)
  1. NEXAVAR [Suspect]
     Indication: HEPATIC NEOPLASM MALIGNANT
     Dosage: TOTAL DAILY DOSE: 800 MG  UNIT DOSE: 200 MG
     Route: 048
     Dates: start: 20090513, end: 20090523
  2. NEXAVAR [Suspect]
     Dosage: TOTAL DAILY DOSE: 200 MG  UNIT DOSE: 200 MG
     Route: 048
     Dates: start: 20090601, end: 20090601
  3. NEXAVAR [Suspect]
     Dosage: TOTAL DAILY DOSE: 400 MG  UNIT DOSE: 200 MG
     Route: 048
     Dates: start: 20090601, end: 20090701
  4. MAXZIDE [Concomitant]
  5. ALLEGRA [Concomitant]

REACTIONS (7)
  - ALOPECIA [None]
  - ARTHRITIS [None]
  - ECCHYMOSIS [None]
  - FATIGUE [None]
  - JOINT CONTRACTURE [None]
  - RASH [None]
  - RASH GENERALISED [None]
